FAERS Safety Report 12713108 (Version 1)
Quarter: 2016Q3

REPORT INFORMATION
  Report Type: Report from Study
  Country: GB (occurrence: GB)
  Receive Date: 20160902
  Receipt Date: 20160902
  Transmission Date: 20161109
  Serious: Yes (Hospitalization)
  Sender: FDA-Public Use
  Company Number: GB-ABBVIE-16K-167-1713164-00

PATIENT
  Age: 76 Year
  Sex: Male
  Weight: 62 kg

DRUGS (1)
  1. HUMIRA [Suspect]
     Active Substance: ADALIMUMAB
     Indication: RHEUMATOID ARTHRITIS
     Route: 058
     Dates: start: 20100610

REACTIONS (7)
  - Hypoalbuminaemia [Unknown]
  - Arthritis bacterial [Unknown]
  - Oedema peripheral [Unknown]
  - Infection [Unknown]
  - Skin lesion [Unknown]
  - Decreased appetite [Unknown]
  - Arthralgia [Unknown]

NARRATIVE: CASE EVENT DATE: 20160614
